FAERS Safety Report 5586505-9 (Version None)
Quarter: 2008Q1

REPORT INFORMATION
  Report Type: 
  Country: None (occurrence: None)
  Receive Date: 20080110
  Receipt Date: 20080102
  Transmission Date: 20080703
  Serious: Yes (Hospitalization, Other)
  Sender: FDA-Public Use
  Company Number: US-ROCHE-534461

PATIENT
  Sex: Female

DRUGS (2)
  1. PEGASYS [Suspect]
     Route: 065
  2. PEGASYS [Suspect]
     Route: 065

REACTIONS (4)
  - BILIARY DYSKINESIA [None]
  - LUNG NEOPLASM [None]
  - OESOPHAGEAL DISORDER [None]
  - PNEUMONIA [None]
